FAERS Safety Report 11271943 (Version 1)
Quarter: 2015Q3

REPORT INFORMATION
  Report Type: Spontaneous
  Country: US (occurrence: None)
  Receive Date: 20150713
  Receipt Date: 20150713
  Transmission Date: 20151125
  Serious: No
  Sender: FDA-Public Use
  Company Number: None

PATIENT
  Age: 34 Year
  Sex: Female
  Weight: 64.86 kg

DRUGS (13)
  1. RAMELTEON 8MG TAKEDA [Suspect]
     Active Substance: RAMELTEON
     Indication: INSOMNIA
     Dosage: APROX 2-4 WEEKS
     Route: 048
  2. VALACYCLOVIR [Concomitant]
     Active Substance: VALACYCLOVIR HYDROCHLORIDE
  3. NUVIGIL [Concomitant]
     Active Substance: ARMODAFINIL
  4. LORATADINE. [Concomitant]
     Active Substance: LORATADINE
  5. TRAMADOL. [Concomitant]
     Active Substance: TRAMADOL
  6. NAPROXEN. [Concomitant]
     Active Substance: NAPROXEN
  7. PROTONIX [Concomitant]
     Active Substance: PANTOPRAZOLE SODIUM
  8. CLONAZEPAM ODT 0.25 MG [Concomitant]
     Active Substance: CLONAZEPAM
  9. HORIZANT [Concomitant]
     Active Substance: GABAPENTIN ENACARBIL
  10. IMITREX [Concomitant]
     Active Substance: SUMATRIPTAN\SUMATRIPTAN SUCCINATE
  11. TORADOL [Concomitant]
     Active Substance: KETOROLAC TROMETHAMINE
  12. TENS [Concomitant]
  13. PIROXICAM TOPICAL [Concomitant]

REACTIONS (4)
  - Dizziness [None]
  - Urine odour abnormal [None]
  - Renal glycosuria [None]
  - Urine ketone body present [None]

NARRATIVE: CASE EVENT DATE: 20150616
